FAERS Safety Report 7406070-0 (Version None)
Quarter: 2011Q2

REPORT INFORMATION
  Report Type: 
  Country: None (occurrence: None)
  Receive Date: 20110411
  Receipt Date: 20110406
  Transmission Date: 20111010
  Serious: Yes (Hospitalization)
  Sender: FDA-Public Use
  Company Number: B0711148A

PATIENT
  Sex: Female

DRUGS (7)
  1. DEROXAT [Suspect]
     Route: 048
     Dates: end: 20110307
  2. ZYPREXA [Concomitant]
     Dosage: 10MG UNKNOWN
     Route: 065
  3. FORTZAAR [Concomitant]
     Route: 065
  4. LASIX [Concomitant]
     Dosage: 40MG UNKNOWN
     Route: 065
  5. AMLODIPINE BESYLATE [Concomitant]
     Dosage: 10MG UNKNOWN
     Route: 065
  6. XANAX [Concomitant]
     Dosage: .5MG UNKNOWN
     Route: 065
  7. ATHYMIL [Concomitant]
     Dosage: 10MG UNKNOWN
     Route: 065

REACTIONS (16)
  - TREMOR [None]
  - INTERSTITIAL LUNG DISEASE [None]
  - CLONUS [None]
  - CENTRAL-ALVEOLAR HYPOVENTILATION [None]
  - COMA [None]
  - DYSARTHRIA [None]
  - RENAL FAILURE ACUTE [None]
  - ANTIDEPRESSANT DRUG LEVEL INCREASED [None]
  - BACTERIAL INFECTION [None]
  - ELECTROENCEPHALOGRAM ABNORMAL [None]
  - PLEURAL EFFUSION [None]
  - LUNG DISORDER [None]
  - MIOSIS [None]
  - SEPTIC SHOCK [None]
  - HYPOXIA [None]
  - RESPIRATORY DISORDER [None]
